FAERS Safety Report 5745759-6 (Version None)
Quarter: 2008Q2

REPORT INFORMATION
  Report Type: 
  Country: None (occurrence: None)
  Receive Date: 20080520
  Receipt Date: 20070507
  Transmission Date: 20081010
  Serious: No
  Sender: FDA-Public Use
  Company Number: TPA2007A00954

PATIENT
  Sex: Male

DRUGS (5)
  1. ROZEREM [Suspect]
     Dosage: 8 MG, PER ORAL
     Route: 048
  2. SEROQUEL [Concomitant]
  3. DEPAKOTE [Concomitant]
  4. ZYPREXA [Concomitant]
  5. LAMICTAL [Concomitant]

REACTIONS (1)
  - CIRCUMSTANCE OR INFORMATION CAPABLE OF LEADING TO MEDICATION ERROR [None]
